FAERS Safety Report 8044102-X (Version None)
Quarter: 2012Q1

REPORT INFORMATION
  Report Type: 
  Country: None (occurrence: None)
  Receive Date: 20120113
  Receipt Date: 20120110
  Transmission Date: 20120608
  Serious: Yes (Hospitalization, Other)
  Sender: FDA-Public Use
  Company Number: US-ABBOTT-11P-163-0863942-00

PATIENT
  Sex: Male
  Weight: 59.928 kg

DRUGS (5)
  1. HUMIRA [Suspect]
     Dates: start: 20110922, end: 20110922
  2. HUMIRA [Suspect]
     Dosage: INTERRUPTED
     Dates: start: 20111006, end: 20111006
  3. CELEXA [Concomitant]
     Indication: BIPOLAR DISORDER
  4. HUMIRA [Suspect]
     Indication: CROHN'S DISEASE
     Dates: start: 20110908, end: 20110908
  5. FLOVENT [Concomitant]
     Indication: ASTHMA

REACTIONS (4)
  - ABDOMINAL PAIN [None]
  - INTESTINAL STENOSIS [None]
  - FISTULA [None]
  - DRUG INEFFECTIVE [None]
